FAERS Safety Report 9680891 (Version 1)
Quarter: 2013Q4

REPORT INFORMATION
  Report Type: Spontaneous
  Country: CN (occurrence: CN)
  Receive Date: 20131111
  Receipt Date: 20131111
  Transmission Date: 20140711
  Serious: Yes (Death, Other)
  Sender: FDA-Public Use
  Company Number: CN-ASTELLAS-2013JP012372

PATIENT
  Age: 22 Year
  Sex: Female

DRUGS (3)
  1. PROGRAF [Suspect]
     Indication: KIDNEY TRANSPLANT REJECTION
     Dosage: UNK
     Route: 065
     Dates: start: 20131014
  2. ATG-FRESENIUS [Suspect]
     Indication: KIDNEY TRANSPLANT REJECTION
     Dosage: 100 MG, UID/QD
     Route: 042
     Dates: start: 20131014, end: 20131016
  3. DIURETICS [Concomitant]
     Route: 065

REACTIONS (3)
  - Drug ineffective [Unknown]
  - Transplant rejection [Unknown]
  - Death [Fatal]
